FAERS Safety Report 7757113-6 (Version None)
Quarter: 2011Q3

REPORT INFORMATION
  Report Type: 
  Country: None (occurrence: None)
  Receive Date: 20110916
  Receipt Date: 20110913
  Transmission Date: 20111222
  Serious: Yes (Death, Life-Threatening, Hospitalization, Other)
  Sender: FDA-Public Use
  Company Number: US-MERCK-1101USA01816

PATIENT
  Age: 57 Year
  Sex: Female
  Weight: 91 kg

DRUGS (2)
  1. GLIMEPIRIDE [Concomitant]
     Indication: TYPE 2 DIABETES MELLITUS
     Route: 065
  2. JANUVIA [Suspect]
     Indication: TYPE 2 DIABETES MELLITUS
     Route: 048
     Dates: start: 20101119, end: 20101130

REACTIONS (4)
  - PLEURAL EFFUSION [None]
  - ONCOLOGIC COMPLICATION [None]
  - PANCREATITIS [None]
  - PERICARDIAL EFFUSION [None]
